FAERS Safety Report 10598501 (Version 1)
Quarter: 2014Q4

REPORT INFORMATION
  Report Type: Spontaneous
  Country: GB (occurrence: None)
  Receive Date: 20141119
  Receipt Date: 20141119
  Transmission Date: 20150529
  Serious: Yes (Hospitalization)
  Sender: FDA-Public Use
  Company Number: 2622396

PATIENT
  Age: 68 Year
  Sex: Female
  Weight: 63 kg

DRUGS (12)
  1. MORPHINE SULPHATE [Concomitant]
     Active Substance: MORPHINE SULFATE
  2. LOPERAMIDE [Concomitant]
     Active Substance: LOPERAMIDE
  3. CAPECITABINE. [Concomitant]
     Active Substance: CAPECITABINE
  4. OXALIPLATIN. [Suspect]
     Active Substance: OXALIPLATIN
     Indication: OESOPHAGEAL CARCINOMA
     Dosage: 210 MG MILLIGRAM(S), UNKNOWN, INTRAVENOUS (NOT OTHERWISE SPECIFIED)
     Route: 042
     Dates: start: 20140923, end: 20140923
  5. ESOMEPRAZOLE [Concomitant]
     Active Substance: ESOMEPRAZOLE
  6. FENTANYL. [Concomitant]
     Active Substance: FENTANYL
  7. PARACETAMOL [Concomitant]
     Active Substance: ACETAMINOPHEN
  8. ZOLPIDEM [Concomitant]
     Active Substance: ZOLPIDEM\ZOLPIDEM TARTRATE
  9. CYCLIZINE [Concomitant]
     Active Substance: CYCLIZINE
  10. NORTRIPTYLINE [Concomitant]
     Active Substance: NORTRIPTYLINE
  11. LEVOTHYROXINE [Concomitant]
     Active Substance: LEVOTHYROXINE
  12. EPIRUBICIN [Concomitant]
     Active Substance: EPIRUBICIN

REACTIONS (6)
  - Dysphagia [None]
  - Laryngospasm [None]
  - Dysaesthesia pharynx [None]
  - Dyspnoea [None]
  - Tachycardia [None]
  - Hypertension [None]

NARRATIVE: CASE EVENT DATE: 20140923
